FAERS Safety Report 9667258 (Version 1)
Quarter: 2013Q4

REPORT INFORMATION
  Report Type: Spontaneous
  Country: SE (occurrence: SE)
  Receive Date: 20131104
  Receipt Date: 20131104
  Transmission Date: 20140711
  Serious: Yes (Death, Other)
  Sender: FDA-Public Use
  Company Number: SE-BAYER-2013-128722

PATIENT
  Sex: Male
  Weight: .68 kg

DRUGS (1)
  1. MIRENA [Suspect]
     Dosage: UNK
     Route: 064
     Dates: start: 20130109

REACTIONS (5)
  - Breech delivery [Fatal]
  - Umbilical cord prolapse [Fatal]
  - Foetal malposition [Fatal]
  - Stillbirth [Fatal]
  - Foetal malposition [Fatal]
